FAERS Safety Report 6561788-7 (Version None)
Quarter: 2010Q1

REPORT INFORMATION
  Report Type: 
  Country: None (occurrence: None)
  Receive Date: 20100130
  Receipt Date: 20091027
  Transmission Date: 20100710
  Serious: Yes (Other)
  Sender: FDA-Public Use
  Company Number: US-ABBOTT-09P-163-0605373-00

PATIENT
  Sex: Female
  Weight: 62.198 kg

DRUGS (7)
  1. HUMIRA [Suspect]
     Indication: RHEUMATOID ARTHRITIS
     Dates: start: 20040615, end: 20080101
  2. HUMIRA [Suspect]
     Dates: start: 20080101, end: 20091020
  3. HUMIRA [Suspect]
     Dates: start: 20091027
  4. PREDNISOLONE [Concomitant]
     Indication: DRUG USE FOR UNKNOWN INDICATION
  5. OFLEXACIN [Concomitant]
     Indication: DRUG USE FOR UNKNOWN INDICATION
  6. OCULAR DROPS [Concomitant]
     Indication: DRUG USE FOR UNKNOWN INDICATION
     Route: 047
  7. OCULAR DROPS [Concomitant]
     Route: 047

REACTIONS (1)
  - CATARACT [None]
